FAERS Safety Report 8681626 (Version 3)
Quarter: 2012Q4

REPORT INFORMATION
  Report Type: Spontaneous
  Country: CA (occurrence: None)
  Receive Date: 20120709
  Receipt Date: 20120824
  Transmission Date: 20130627
  Serious: Yes (Other)
  Sender: FDA-Public Use
  Company Number: 2012-2958

PATIENT
  Age: 64 Year
  Sex: Female

DRUGS (14)
  1. LANREOTIDE ACETATE [Suspect]
     Indication: CARCINOID TUMOUR
     Dosage: 120 MG (120 7 (G,1 IN 3 WK),SUBCUTANEOUS
     Route: 058
     Dates: start: 20070708
  2. PERCOCET [Concomitant]
  3. PREVACID [Concomitant]
  4. RAMIPRIL [Concomitant]
  5. PROTEASE (PROTEASE) [Concomitant]
  6. AMYLASE (AMYLASE) [Concomitant]
  7. HYDROCHLOROTHIAZIDE [Concomitant]
  8. CYTOMEL [Concomitant]
  9. CYMBALTA [Concomitant]
  10. UNSPECIFIED STOOL SOFTENER(DOCUSATE SODIUM) [Concomitant]
  11. VITAMIN D [Concomitant]
  12. LOVAZA [Concomitant]
  13. COQ10 (UBIDECARENONE) [Concomitant]
  14. POTASSIUM SUPPLEMENT (POTASSIUM) [Concomitant]

REACTIONS (7)
  - DEHYDRATION [None]
  - HEART RATE INCREASED [None]
  - SOMNOLENCE [None]
  - DYSPNOEA [None]
  - HYPERHIDROSIS [None]
  - DIARRHOEA [None]
  - INAPPROPRIATE SCHEDULE OF DRUG ADMINISTRATION [None]
